FAERS Safety Report 13297321 (Version 1)
Quarter: 2017Q1

REPORT INFORMATION
  Report Type: Spontaneous
  Country: US (occurrence: US)
  Receive Date: 20170304
  Receipt Date: 20170304
  Transmission Date: 20170428
  Serious: Yes (Disabling)
  Sender: FDA-Public Use
  Company Number: None

PATIENT
  Age: 46 Year
  Sex: Female
  Weight: 51.75 kg

DRUGS (1)
  1. STOOL SOFTENER (DOCUSATE SODIUM) [Suspect]
     Active Substance: DOCUSATE SODIUM
     Indication: CONSTIPATION
     Dosage: QUANTITY:250 SOFTGELS;?
     Route: 048
     Dates: start: 20160723, end: 20170225

REACTIONS (4)
  - Dyspepsia [None]
  - Blastocystis infection [None]
  - Gastric disorder [None]
  - Product contamination [None]

NARRATIVE: CASE EVENT DATE: 20160726
